FAERS Safety Report 16696910 (Version 2)
Quarter: 2019Q3

REPORT INFORMATION
  Report Type: Spontaneous
  Country: US (occurrence: US)
  Receive Date: 20190813
  Receipt Date: 20190827
  Transmission Date: 20191004
  Serious: Yes (Other)
  Sender: FDA-Public Use
  Company Number: US-SA-2019SA221471

PATIENT
  Age: 72 Year
  Sex: Male

DRUGS (10)
  1. AMLODIPINE [Concomitant]
     Active Substance: AMLODIPINE BESYLATE
  2. CRESTOR [Concomitant]
     Active Substance: ROSUVASTATIN CALCIUM
  3. PRALUENT [Suspect]
     Active Substance: ALIROCUMAB
     Indication: LIPIDS INCREASED
     Dosage: 150 MG, QOW
  4. DILANTIN [Concomitant]
     Active Substance: PHENYTOIN
     Dosage: 400 MG
  5. PLAVIX [Concomitant]
     Active Substance: CLOPIDOGREL BISULFATE
  6. KEPPRA [Concomitant]
     Active Substance: LEVETIRACETAM
  7. HYDROCORTISONE. [Concomitant]
     Active Substance: HYDROCORTISONE
  8. ASPIRIN 81 [Concomitant]
     Active Substance: ASPIRIN
  9. PRALUENT [Suspect]
     Active Substance: ALIROCUMAB
     Indication: BLOOD CHOLESTEROL
  10. FISH OIL [Concomitant]
     Active Substance: FISH OIL

REACTIONS (7)
  - Decreased appetite [Unknown]
  - Pneumonia [Unknown]
  - Weight decreased [Unknown]
  - Muscular weakness [Recovering/Resolving]
  - Pyrexia [Unknown]
  - Therapeutic response unexpected [Unknown]
  - Dysphonia [Recovering/Resolving]

NARRATIVE: CASE EVENT DATE: 201907
